FAERS Safety Report 8774082 (Version 1)
Quarter: 2012Q4

REPORT INFORMATION
  Report Type: 
  Country: US (occurrence: US)
  Receive Date: 20120907
  Receipt Date: 20120907
  Transmission Date: 20130627
  Serious: No
  Sender: FDA-Public Use
  Company Number: US-009507513-1208USA001172

PATIENT

DRUGS (3)
  1. PEGINTRON [Suspect]
     Indication: HEPATITIS C
     Dosage: Pegintron injection 120,0.4 ml, qw
     Route: 058
     Dates: start: 20111206
  2. VICTRELIS [Suspect]
     Indication: HEPATITIS C
     Dosage: 800 mg, tid,Victrelis 200 mg
     Route: 048
     Dates: start: 20111206
  3. RIBASPHERE [Concomitant]
     Indication: HEPATITIS C

REACTIONS (2)
  - Anaemia [Unknown]
  - Aphthous stomatitis [Unknown]
